FAERS Safety Report 7557278-5 (Version None)
Quarter: 2011Q2

REPORT INFORMATION
  Report Type: 
  Country: None (occurrence: None)
  Receive Date: 20110616
  Receipt Date: 20110616
  Transmission Date: 20111010
  Serious: Yes (Hospitalization)
  Sender: FDA-Public Use
  Company Number: None

PATIENT
  Sex: Female
  Weight: 73.9363 kg

DRUGS (1)
  1. RAD 001 EVEROLIMUS [Suspect]
     Indication: BREAST CANCER METASTATIC
     Dosage: 5MG ONE PO DAILY
     Route: 048
     Dates: start: 20110531

REACTIONS (5)
  - PLEURAL EFFUSION [None]
  - PNEUMONIA [None]
  - PYREXIA [None]
  - BREAST CANCER METASTATIC [None]
  - NEOPLASM PROGRESSION [None]
